FAERS Safety Report 15525769 (Version 2)
Quarter: 2018Q4

REPORT INFORMATION
  Report Type: Spontaneous
  Country: JP (occurrence: JP)
  Receive Date: 20181018
  Receipt Date: 20181018
  Transmission Date: 20190205
  Serious: Yes (Other)
  Sender: FDA-Public Use
  Company Number: PHHY2018JP125232

PATIENT
  Age: 33 Year
  Sex: Female

DRUGS (4)
  1. PHENYLEPHRINE [Suspect]
     Active Substance: PHENYLEPHRINE\PHENYLEPHRINE HYDROCHLORIDE
     Indication: METAMORPHOPSIA
     Route: 065
  2. BETAMETHASONE. [Suspect]
     Active Substance: BETAMETHASONE
     Indication: METAMORPHOPSIA
     Route: 065
  3. TRIAMCINOLONE ACETONIDE. [Suspect]
     Active Substance: TRIAMCINOLONE ACETONIDE
     Indication: VOGT-KOYANAGI-HARADA SYNDROME
     Dosage: 20 MG, (0.5 ML INJECTIONS USING AN INJECTION TECHNIQUE)
     Route: 065
  4. TROPICAMIDE. [Suspect]
     Active Substance: TROPICAMIDE
     Indication: METAMORPHOPSIA
     Route: 065

REACTIONS (4)
  - Subretinal fluid [Recovering/Resolving]
  - Maternal exposure during pregnancy [Unknown]
  - Chorioretinal folds [Recovering/Resolving]
  - Product use in unapproved indication [Unknown]
